FAERS Safety Report 8808791 (Version 1)
Quarter: 2012Q4

REPORT INFORMATION
  Report Type: 
  Country: US (occurrence: US)
  Receive Date: 20120926
  Receipt Date: 20120926
  Transmission Date: 20130627
  Serious: No
  Sender: FDA-Public Use
  Company Number: US-PFIZER INC-2012238155

PATIENT
  Age: 69 Year
  Sex: Male
  Weight: 86.17 kg

DRUGS (4)
  1. LYRICA [Suspect]
     Indication: DIABETIC NEUROPATHY
     Dosage: 150 mg, 2x/day
     Route: 048
     Dates: start: 2012, end: 2012
  2. LYRICA [Suspect]
     Dosage: 100 mg, 3x/day
     Route: 048
     Dates: start: 2012, end: 20120921
  3. LORTAB [Concomitant]
     Dosage: UNK
  4. ACTEMRA [Concomitant]
     Dosage: 500 mg, UNK

REACTIONS (1)
  - Pain [Unknown]
